FAERS Safety Report 6705103-4 (Version None)
Quarter: 2010Q2

REPORT INFORMATION
  Report Type: 
  Country: None (occurrence: None)
  Receive Date: 20100430
  Receipt Date: 20100219
  Transmission Date: 20101027
  Serious: No
  Sender: FDA-Public Use
  Company Number: US-ASTRAZENECA-2010SE07727

PATIENT
  Age: 59 Year
  Sex: Female
  Weight: 72.6 kg

DRUGS (6)
  1. NEXIUM [Suspect]
     Indication: GASTROOESOPHAGEAL REFLUX DISEASE
     Route: 048
     Dates: start: 20100214
  2. SYNTHROID [Concomitant]
  3. CLONIDINE HCL [Concomitant]
  4. LOVASTATIN [Concomitant]
  5. ATAVAN [Concomitant]
  6. ALBUTEROL [Concomitant]

REACTIONS (2)
  - PANIC ATTACK [None]
  - THROAT TIGHTNESS [None]
